FAERS Safety Report 25815230 (Version 1)
Quarter: 2025Q3

REPORT INFORMATION
  Report Type: Spontaneous
  Country: US (occurrence: US)
  Receive Date: 20250918
  Receipt Date: 20250918
  Transmission Date: 20251021
  Serious: No
  Sender: STRIDES
  Company Number: US-STRIDES ARCOLAB LIMITED-2025SP011544

PATIENT
  Age: 45 Year
  Sex: Male

DRUGS (20)
  1. OXYCODONE [Suspect]
     Active Substance: OXYCODONE
     Indication: Hereditary haemochromatosis
     Route: 065
  2. OXYCODONE [Suspect]
     Active Substance: OXYCODONE
     Indication: Pain
  3. PREGABALIN [Suspect]
     Active Substance: PREGABALIN
     Indication: Hereditary haemochromatosis
     Route: 065
  4. PREGABALIN [Suspect]
     Active Substance: PREGABALIN
     Indication: Pain
  5. CYCLOBENZAPRINE [Suspect]
     Active Substance: CYCLOBENZAPRINE
     Indication: Hereditary haemochromatosis
     Route: 065
  6. CYCLOBENZAPRINE [Suspect]
     Active Substance: CYCLOBENZAPRINE
     Indication: Pain
  7. BACLOFEN [Suspect]
     Active Substance: BACLOFEN
     Indication: Hereditary haemochromatosis
     Route: 065
  8. BACLOFEN [Suspect]
     Active Substance: BACLOFEN
     Indication: Pain
  9. AMITRIPTYLINE [Suspect]
     Active Substance: AMITRIPTYLINE
     Indication: Hereditary haemochromatosis
     Route: 065
  10. AMITRIPTYLINE [Suspect]
     Active Substance: AMITRIPTYLINE
     Indication: Pain
  11. GABAPENTIN [Suspect]
     Active Substance: GABAPENTIN
     Indication: Hereditary haemochromatosis
     Route: 065
  12. GABAPENTIN [Suspect]
     Active Substance: GABAPENTIN
     Indication: Pain
  13. ACETAMINOPHEN [Suspect]
     Active Substance: ACETAMINOPHEN
     Indication: Hereditary haemochromatosis
     Route: 065
  14. ACETAMINOPHEN [Suspect]
     Active Substance: ACETAMINOPHEN
     Indication: Pain
  15. CARISOPRODOL [Suspect]
     Active Substance: CARISOPRODOL
     Indication: Hereditary haemochromatosis
     Route: 065
  16. CARISOPRODOL [Suspect]
     Active Substance: CARISOPRODOL
     Indication: Pain
  17. DEXAMETHASONE [Suspect]
     Active Substance: DEXAMETHASONE
     Indication: Hereditary haemochromatosis
     Route: 065
  18. DEXAMETHASONE [Suspect]
     Active Substance: DEXAMETHASONE
     Indication: Pain
  19. TIZANIDINE [Suspect]
     Active Substance: TIZANIDINE
     Indication: Hereditary haemochromatosis
     Route: 065
  20. TIZANIDINE [Suspect]
     Active Substance: TIZANIDINE
     Indication: Pain

REACTIONS (2)
  - Therapy non-responder [Unknown]
  - Off label use [Unknown]
